FAERS Safety Report 22198682 (Version 1)
Quarter: 2023Q2

REPORT INFORMATION
  Report Type: Spontaneous
  Country: US (occurrence: None)
  Receive Date: 20230411
  Receipt Date: 20230411
  Transmission Date: 20230722
  Serious: Yes (Hospitalization)
  Sender: FDA-Public Use
  Company Number: None

PATIENT
  Sex: Male

DRUGS (3)
  1. CREON [Suspect]
     Active Substance: PANCRELIPASE AMYLASE\PANCRELIPASE LIPASE\PANCRELIPASE PROTEASE
     Indication: Cystic fibrosis
     Dosage: OTHER QUANTITY : 1200-3800 UNIT;?FREQUENCY : AS DIRECTED;?
     Route: 048
     Dates: start: 20220328
  2. CREON [Suspect]
     Active Substance: PANCRELIPASE AMYLASE\PANCRELIPASE LIPASE\PANCRELIPASE PROTEASE
     Dosage: FREQUENCY : AS DIRECTED;?
     Route: 048
  3. COMPLETE FORM CHEW BUBBLEGUM [Concomitant]

REACTIONS (6)
  - Intestinal obstruction [None]
  - Gastrointestinal disorder [None]
  - Flatulence [None]
  - Abdominal pain upper [None]
  - Constipation [None]
  - Vomiting [None]
